FAERS Safety Report 8732465 (Version 2)
Quarter: 2015Q2

REPORT INFORMATION
  Report Type: Report from Study
  Country: US (occurrence: US)
  Receive Date: 20120820
  Receipt Date: 20150402
  Transmission Date: 20150821
  Serious: Yes (Death, Hospitalization)
  Sender: FDA-Public Use
  Company Number: US-ROCHE-1100451

PATIENT
  Sex: Male

DRUGS (7)
  1. MORPHINE [Concomitant]
     Active Substance: MORPHINE
     Route: 042
  2. DOBUTAMINE [Concomitant]
     Active Substance: DOBUTAMINE\DOBUTAMINE HYDROCHLORIDE
  3. LIDOCAINE. [Concomitant]
     Active Substance: LIDOCAINE
     Route: 041
  4. ACTIVASE [Suspect]
     Active Substance: ALTEPLASE
     Indication: ACUTE MYOCARDIAL INFARCTION
     Route: 065
  5. NITROGLYCERIN. [Concomitant]
     Active Substance: NITROGLYCERIN
     Route: 060
  6. DOPAMINE [Concomitant]
     Active Substance: DOPAMINE\DOPAMINE HYDROCHLORIDE
     Dosage: 25 MCG PER KILOGRAM PER MINUTE
     Route: 041
  7. PROCARDIA (UNITED STATES) [Concomitant]
     Route: 065

REACTIONS (7)
  - Death [Fatal]
  - Pulseless electrical activity [Unknown]
  - Ventricular tachycardia [Unknown]
  - Tonic convulsion [Unknown]
  - Ventricular fibrillation [Unknown]
  - Bradycardia [Unknown]
  - Vomiting [Unknown]
